FAERS Safety Report 9519568 (Version 1)
Quarter: 2013Q3

REPORT INFORMATION
  Report Type: Spontaneous
  Country: JP (occurrence: JP)
  Receive Date: 20130912
  Receipt Date: 20130912
  Transmission Date: 20140515
  Serious: Yes (Other)
  Sender: FDA-Public Use
  Company Number: PHHY2013JP099079

PATIENT
  Age: 63 Year
  Sex: Male

DRUGS (4)
  1. CARBOPLATIN SANDOZ [Suspect]
     Indication: LUNG ADENOCARCINOMA
  2. PEMETREXED [Suspect]
     Indication: LUNG ADENOCARCINOMA
  3. BEVACIZUMAB [Suspect]
     Indication: LUNG ADENOCARCINOMA
  4. STEROID [Suspect]
     Indication: BRAIN OEDEMA

REACTIONS (3)
  - Gastrointestinal perforation [Unknown]
  - Intestinal ischaemia [Unknown]
  - Cytomegalovirus enterocolitis [Unknown]
